FAERS Safety Report 9329650 (Version 1)
Quarter: 2013Q2

REPORT INFORMATION
  Report Type: Spontaneous
  Country: US (occurrence: US)
  Receive Date: 20130604
  Receipt Date: 20130604
  Transmission Date: 20140414
  Serious: No
  Sender: FDA-Public Use
  Company Number: US-SANOFI-AVENTIS-2013SA000837

PATIENT
  Age: 77 Year
  Sex: Male

DRUGS (3)
  1. LANTUS [Suspect]
     Indication: TYPE 2 DIABETES MELLITUS
     Dosage: DOSE:26 UNIT(S)
     Route: 051
     Dates: start: 2008
  2. HUMALOG [Suspect]
     Route: 065
  3. CLARITIN-D [Concomitant]
     Route: 065

REACTIONS (2)
  - Blood glucose decreased [Unknown]
  - Hyperhidrosis [Unknown]
